FAERS Safety Report 16914455 (Version 1)
Quarter: 2019Q4

REPORT INFORMATION
  Report Type: Spontaneous
  Country: US (occurrence: US)
  Receive Date: 20191014
  Receipt Date: 20191014
  Transmission Date: 20200122
  Serious: No
  Sender: FDA-Public Use
  Company Number: US-PFIZER INC-2019441815

PATIENT
  Age: 80 Year
  Sex: Male
  Weight: 85.26 kg

DRUGS (1)
  1. GABAPENTIN. [Suspect]
     Active Substance: GABAPENTIN
     Dosage: UNK, 1X/DAY (9 PILLS A DAY)

REACTIONS (1)
  - Drug ineffective [Unknown]
